FAERS Safety Report 5733049-7 (Version None)
Quarter: 2008Q2

REPORT INFORMATION
  Report Type: 
  Country: None (occurrence: None)
  Receive Date: 20080509
  Receipt Date: 20080506
  Transmission Date: 20081010
  Serious: Yes (Life-Threatening, Hospitalization)
  Sender: FDA-Public Use
  Company Number: FR-WYE-G01499908

PATIENT
  Sex: Female

DRUGS (6)
  1. EFFEXOR [Suspect]
     Indication: DEPRESSION
     Dosage: UNKNOWN
     Route: 048
     Dates: start: 20071115, end: 20071127
  2. PARACETAMOL [Concomitant]
     Dosage: UNKNOWN
  3. NORDAZ [Suspect]
     Dosage: UNKNOWN
     Route: 048
     Dates: end: 20071127
  4. OMEPRAZOLE [Suspect]
     Dosage: UNKNOWN
     Route: 048
     Dates: end: 20071127
  5. MEPRONIZINE [Suspect]
     Dosage: UNKNOWN
     Route: 048
     Dates: end: 20071127
  6. ATARAX [Suspect]
     Dosage: UNKNOWN
     Dates: end: 20071127

REACTIONS (3)
  - ARTHRALGIA [None]
  - DRUG RASH WITH EOSINOPHILIA AND SYSTEMIC SYMPTOMS [None]
  - INFLUENZA [None]
